FAERS Safety Report 8807213 (Version 6)
Quarter: 2013Q2

REPORT INFORMATION
  Report Type: Report from Study
  Country: US (occurrence: US)
  Receive Date: 20120925
  Receipt Date: 20130607
  Transmission Date: 20140414
  Serious: Yes (Death, Hospitalization)
  Sender: FDA-Public Use
  Company Number: US-ROCHE-1107451

PATIENT
  Age: 69 Year
  Sex: Female

DRUGS (15)
  1. VEMURAFENIB [Suspect]
     Indication: MALIGNANT MELANOMA
     Route: 048
     Dates: start: 20120503, end: 20120620
  2. VEMURAFENIB [Suspect]
     Route: 048
     Dates: start: 20110628, end: 20120813
  3. IPILIMUMAB [Suspect]
     Indication: MALIGNANT MELANOMA
     Route: 042
     Dates: start: 20120531, end: 20120712
  4. PREDNISONE [Concomitant]
  5. FISH OIL [Concomitant]
     Route: 065
     Dates: start: 20111010
  6. LECITHIN [Concomitant]
     Route: 065
     Dates: start: 20111007
  7. IBUPROFEN [Concomitant]
     Route: 065
     Dates: start: 20120510
  8. ZOFRAN [Concomitant]
     Route: 065
     Dates: start: 20120524
  9. OXYCODONE [Concomitant]
     Route: 065
     Dates: start: 20120524
  10. OMEPRAZOLE [Concomitant]
  11. IMITREX [Concomitant]
  12. PREDNISONE [Concomitant]
     Indication: TEMPORAL ARTERITIS
     Dosage: INITIAL DOSE NOT REPORTED
     Route: 065
  13. PREDNISONE [Concomitant]
     Route: 065
  14. BACTRIM DS [Concomitant]
     Indication: PROPHYLAXIS
     Dosage: INITIAL DOSE NOT REPORTED.
     Route: 065
  15. BACTRIM DS [Concomitant]
     Dosage: 800/100
     Route: 065
     Dates: start: 20120815

REACTIONS (2)
  - Sepsis [Fatal]
  - Cytomegalovirus enteritis [Unknown]
